FAERS Safety Report 9538685 (Version 2)
Quarter: 2013Q3

REPORT INFORMATION
  Report Type: Report from Study
  Country: US (occurrence: US)
  Receive Date: 20130920
  Receipt Date: 20130920
  Transmission Date: 20140515
  Serious: Yes (Hospitalization, Other)
  Sender: FDA-Public Use
  Company Number: PHEH2013US011112

PATIENT
  Age: 44 Year
  Sex: Female
  Weight: 74.83 kg

DRUGS (1)
  1. GILENYA [Suspect]
     Indication: MULTIPLE SCLEROSIS
     Dosage: 0.5 MG, QD
     Route: 048
     Dates: start: 20130516, end: 20130516

REACTIONS (6)
  - Arrhythmia [Recovered/Resolved]
  - Palpitations [Unknown]
  - Atrioventricular block second degree [Recovered/Resolved]
  - Heart rate decreased [Recovered/Resolved]
  - Musculoskeletal discomfort [Unknown]
  - Headache [Unknown]
